FAERS Safety Report 4452967-3 (Version None)
Quarter: 2004Q3

REPORT INFORMATION
  Report Type: 
  Country: None (occurrence: None)
  Receive Date: 20040916
  Receipt Date: 20040902
  Transmission Date: 20050211
  Serious: Yes (Death, Hospitalization)
  Sender: FDA-Public Use
  Company Number: 2004036779

PATIENT
  Age: 43 Year
  Sex: Female
  Weight: 43.2732 kg

DRUGS (20)
  1. SILDENAFIL (SILDENAFIL) [Suspect]
     Indication: PULMONARY HYPERTENSION
     Dosage: 240 MG (80 MG, 3 IN 1 D), ORAL
     Route: 048
     Dates: start: 20040414, end: 20040604
  2. SPIRONOLACTONE [Concomitant]
  3. FUROSEMIDE [Concomitant]
  4. WARFARIN (WARFARIN) [Concomitant]
  5. SERTRALINE HCL [Concomitant]
  6. OXYCODONE (OXYCODONE) [Concomitant]
  7. ESOMEPRAZOLE (ESOMEPRAZOLE) [Concomitant]
  8. ESTRADIOL, COMBINATIONS (ESTRADIOL, COMBINATIONS) [Concomitant]
  9. PANCRELIPASE (PANCRELIPASE) [Concomitant]
  10. ASCORBIC ACID [Concomitant]
  11. OMEPRAZOLE [Concomitant]
  12. OXYCOCET (OXYCODONE HYDROCHLORIDE, PARACETAMOL) [Concomitant]
  13. ISOPHANE INSULIN [Concomitant]
  14. AMITRIPTYLINE HCL [Concomitant]
  15. POTASSIUM CHLORIDE [Concomitant]
  16. MULVITAMINS (ASCORBIC ACID, ERGOCALCIFEROL, FOLIC ACID, NICOTINAMIDE, [Concomitant]
  17. ALPRAZOLAM [Concomitant]
  18. OXYGEN (OXYGEN) [Concomitant]
  19. ROSE (PETALS) (ROSE (PETALS)) [Concomitant]
  20. EPOPROSTENOL (EPOPROSTENOL) [Concomitant]

REACTIONS (32)
  - ANAEMIA [None]
  - ASCITES [None]
  - BLOOD GLUCOSE INCREASED [None]
  - CARDIOMEGALY [None]
  - COMA [None]
  - CONDITION AGGRAVATED [None]
  - DEHYDRATION [None]
  - DEPRESSION [None]
  - FAECAL OCCULT BLOOD POSITIVE [None]
  - GASTROINTESTINAL HAEMORRHAGE [None]
  - HYPOALBUMINAEMIA [None]
  - HYPOCALCAEMIA [None]
  - HYPOGLYCAEMIA [None]
  - HYPONATRAEMIA [None]
  - HYPOTENSION [None]
  - HYPOTHERMIA [None]
  - HYPOVOLAEMIA [None]
  - INTERNATIONAL NORMALISED RATIO INCREASED [None]
  - ISCHAEMIC HEPATITIS [None]
  - LIVER DISORDER [None]
  - MALNUTRITION [None]
  - MULTI-ORGAN FAILURE [None]
  - NAUSEA [None]
  - OXYGEN SATURATION DECREASED [None]
  - PANCREATITIS CHRONIC [None]
  - PERICARDIAL EFFUSION [None]
  - PROTHROMBIN TIME PROLONGED [None]
  - RENAL FAILURE [None]
  - RIGHT VENTRICULAR FAILURE [None]
  - SOMNOLENCE [None]
  - SYNCOPE [None]
  - URINARY TRACT INFECTION [None]
